FAERS Safety Report 7230983-6 (Version None)
Quarter: 2011Q1

REPORT INFORMATION
  Report Type: 
  Country: None (occurrence: None)
  Receive Date: 20110118
  Receipt Date: 20110111
  Transmission Date: 20110831
  Serious: Yes (Congenital Anomaly, Other)
  Sender: FDA-Public Use
  Company Number: US-AMGEN-QUU414669

PATIENT

DRUGS (2)
  1. ENBREL [Suspect]
     Indication: JUVENILE ARTHRITIS
     Dosage: UNK UNK, QWK
     Route: 064
     Dates: end: 20090701
  2. PRENATAL VITAMINS                  /02014401/ [Concomitant]
     Route: 064

REACTIONS (4)
  - GASTROSCHISIS [None]
  - DYSPNOEA [None]
  - TRACHEAL STENOSIS [None]
  - CONGENITAL MULTIPLEX ARTHROGRYPOSIS [None]
